FAERS Safety Report 24970062 (Version 1)
Quarter: 2025Q1

REPORT INFORMATION
  Report Type: Spontaneous
  Country: US (occurrence: US)
  Receive Date: 20250214
  Receipt Date: 20250214
  Transmission Date: 20250409
  Serious: Yes (Hospitalization, Other)
  Sender: BAYER HEALTHCARE PHARMACEUTICALS INC.
  Company Number: US-BAYER-2025A018769

PATIENT
  Age: 36 Year
  Sex: Female

DRUGS (2)
  1. MIRENA [Suspect]
     Active Substance: LEVONORGESTREL
     Indication: Contraception
     Dosage: 20?G/DAY
     Route: 015
     Dates: start: 20241220, end: 20250206
  2. MIRENA [Suspect]
     Active Substance: LEVONORGESTREL
     Indication: Heavy menstrual bleeding

REACTIONS (7)
  - Uterine perforation [None]
  - Procedural pain [None]
  - Post procedural haemorrhage [None]
  - Device difficult to use [None]
  - Abnormal uterine bleeding [None]
  - Vaginal haemorrhage [None]
  - Uterine leiomyoma [None]

NARRATIVE: CASE EVENT DATE: 20241201
